FAERS Safety Report 8330916-5 (Version None)
Quarter: 2012Q2

REPORT INFORMATION
  Report Type: 
  Country: None (occurrence: None)
  Receive Date: 20120502
  Receipt Date: 20120426
  Transmission Date: 20120825
  Serious: No
  Sender: FDA-Public Use
  Company Number: US-PFIZER INC-2012103944

PATIENT
  Sex: Female
  Weight: 78.458 kg

DRUGS (5)
  1. ATIVAN [Concomitant]
     Indication: NERVOUS SYSTEM DISORDER
     Dosage: 5 MG, UNK
  2. AMBIEN [Concomitant]
     Indication: INSOMNIA
     Dosage: 5 MG, UNK
  3. TOVIAZ [Suspect]
     Indication: URINARY INCONTINENCE
     Dosage: UNK, DAILY
     Route: 048
     Dates: start: 20120424
  4. PREDNISOLONE [Concomitant]
     Indication: INFLAMMATION
     Dosage: UNK
     Dates: start: 20120426, end: 20120101
  5. VALSARTAN [Concomitant]
     Indication: HYPERTENSION
     Dosage: 80 MG, DAILY

REACTIONS (4)
  - LIP DRY [None]
  - DRUG INEFFECTIVE [None]
  - DRY MOUTH [None]
  - TONGUE DRY [None]
